FAERS Safety Report 7418225-X (Version None)
Quarter: 2011Q2

REPORT INFORMATION
  Report Type: 
  Country: None (occurrence: None)
  Receive Date: 20110415
  Receipt Date: 20110404
  Transmission Date: 20111010
  Serious: Yes (Other)
  Sender: FDA-Public Use
  Company Number: US-JNJFOC-20110401456

PATIENT
  Sex: Female
  Weight: 92.99 kg

DRUGS (13)
  1. ARAVA [Concomitant]
     Indication: RHEUMATOID ARTHRITIS
     Route: 048
  2. OXYCONTIN [Concomitant]
     Indication: PAIN
     Route: 048
  3. TOPROL-XL [Concomitant]
     Indication: BLOOD PRESSURE
     Route: 048
  4. LIPITOR [Concomitant]
     Indication: BLOOD CHOLESTEROL
     Dosage: DAILY AT NIGHT
     Route: 048
  5. NEURONTIN [Concomitant]
     Indication: PAIN
     Route: 048
  6. REMICADE [Suspect]
     Indication: RHEUMATOID ARTHRITIS
     Route: 042
  7. IMURAN [Concomitant]
     Indication: RHEUMATOID ARTHRITIS
     Route: 048
  8. NEXIUM [Concomitant]
     Indication: GASTROOESOPHAGEAL REFLUX DISEASE
     Route: 048
  9. NORVASC [Concomitant]
     Indication: BLOOD PRESSURE
     Route: 048
  10. TRAZADOL [Concomitant]
     Indication: SLEEP DISORDER
     Dosage: DAILY AT NIGHT
     Route: 048
  11. FLEXERIL [Concomitant]
     Route: 048
  12. XANAX [Concomitant]
     Indication: ANXIETY
     Route: 048
  13. OXYCODONE [Concomitant]
     Indication: BREAKTHROUGH PAIN
     Dosage: 7.5/325 MG TABLET UP TO THREE PER DAY AS NEEDED
     Route: 048

REACTIONS (5)
  - DIASTOLIC DYSFUNCTION [None]
  - PAIN IN EXTREMITY [None]
  - FATIGUE [None]
  - FLUID RETENTION [None]
  - MUSCULAR WEAKNESS [None]
